FAERS Safety Report 18948426 (Version 1)
Quarter: 2021Q1

REPORT INFORMATION
  Report Type: Spontaneous
  Country: HU (occurrence: HU)
  Receive Date: 20210227
  Receipt Date: 20210227
  Transmission Date: 20210420
  Serious: Yes (Other)
  Sender: FDA-Public Use
  Company Number: HU-ACCORD-218160

PATIENT
  Age: 49 Year
  Sex: Female

DRUGS (13)
  1. GEMCITABINE/GEMCITABINE HYDROCHLORIDE [Suspect]
     Active Substance: GEMCITABINE\GEMCITABINE HYDROCHLORIDE
     Indication: BREAST CANCER
     Route: 042
     Dates: start: 20201209, end: 20201209
  2. SOLU?MEDROL [Concomitant]
     Active Substance: METHYLPREDNISOLONE SODIUM SUCCINATE
     Route: 042
  3. ZOLADEX [Concomitant]
     Active Substance: GOSERELIN ACETATE
     Route: 058
  4. BISOBLOCK [Concomitant]
     Active Substance: BISOPROLOL FUMARATE
     Indication: ARRHYTHMIA
     Route: 048
  5. VITAMIN D3 [Concomitant]
     Active Substance: CHOLECALCIFEROL
     Route: 048
  6. CAPECITABINE. [Suspect]
     Active Substance: CAPECITABINE
     Indication: BREAST CANCER
     Route: 048
     Dates: start: 20200806, end: 20201002
  7. PACLITAXEL/PACLITAXEL LIPOSOME [Suspect]
     Active Substance: PACLITAXEL
     Indication: BREAST CANCER
     Route: 042
     Dates: start: 20200731, end: 20200731
  8. TRAZIMERA [Concomitant]
     Active Substance: TRASTUZUMAB-QYYP
     Route: 042
  9. LENDIN [Concomitant]
     Route: 048
  10. PERJETA [Concomitant]
     Active Substance: PERTUZUMAB
     Route: 041
  11. ONDANSETRON [Concomitant]
     Active Substance: ONDANSETRON
     Route: 042
  12. FILGRASTIM [Concomitant]
     Active Substance: FILGRASTIM
     Indication: WHITE BLOOD CELL COUNT DECREASED
     Route: 058
  13. LETROX [Concomitant]
     Active Substance: LEVOTHYROXINE SODIUM
     Indication: THYROID DISORDER
     Route: 048

REACTIONS (2)
  - Rash erythematous [Recovered/Resolved]
  - Skin exfoliation [Recovered/Resolved]
